FAERS Safety Report 15594755 (Version 2)
Quarter: 2018Q4

REPORT INFORMATION
  Report Type: Spontaneous
  Country: US (occurrence: US)
  Receive Date: 20181107
  Receipt Date: 20181126
  Transmission Date: 20190205
  Serious: No
  Sender: FDA-Public Use
  Company Number: US-009507513-1811USA002761

PATIENT

DRUGS (1)
  1. ASMANEX [Suspect]
     Active Substance: MOMETASONE FUROATE
     Dosage: STRENGH: 220 MICROGRAM. 220 MICROGRAM, ONCE DAILY
     Route: 055

REACTIONS (4)
  - Product quality issue [Unknown]
  - No adverse event [Unknown]
  - Poor quality device used [Unknown]
  - Product dose omission [Unknown]

NARRATIVE: CASE EVENT DATE: 20181105
